FAERS Safety Report 8257084-2 (Version None)
Quarter: 2012Q1

REPORT INFORMATION
  Report Type: 
  Country: None (occurrence: None)
  Receive Date: 20120330
  Receipt Date: 20120330
  Transmission Date: 20120608
  Serious: Yes (Life-Threatening, Hospitalization)
  Sender: FDA-Public Use
  Company Number: None

PATIENT
  Age: 69 Year
  Sex: Female
  Weight: 59.1 kg

DRUGS (1)
  1. LOSARTAN POTASSIUM [Suspect]
     Indication: HYPERTENSION
     Dosage: 100 MG DAILY ORAL
     Route: 048
     Dates: start: 20120208, end: 20120223

REACTIONS (6)
  - URINE ANALYSIS ABNORMAL [None]
  - PRURITUS [None]
  - HOT FLUSH [None]
  - RENAL IMPAIRMENT [None]
  - RASH [None]
  - CHEST PAIN [None]
